FAERS Safety Report 24454820 (Version 2)
Quarter: 2024Q4

REPORT INFORMATION
  Report Type: Report from Study
  Country: US (occurrence: US)
  Receive Date: 20241017
  Receipt Date: 20241018
  Transmission Date: 20250115
  Serious: No
  Sender: ROCHE
  Company Number: US-ROCHE-3470566

PATIENT
  Age: 80 Year
  Sex: Male

DRUGS (11)
  1. RITUXAN [Suspect]
     Active Substance: RITUXIMAB
     Indication: Arteritis
     Dosage: INFUSE 500MG INTRAVENOUSLY ON DAY(S) 1 AND EVERY 6 MONTH(S)
     Route: 042
  2. RITUXAN [Suspect]
     Active Substance: RITUXIMAB
     Indication: Granulomatosis with polyangiitis
  3. AMLODIPINE [Concomitant]
     Active Substance: AMLODIPINE BESYLATE
  4. ATENOLOL [Concomitant]
     Active Substance: ATENOLOL
  5. CIALIS [Concomitant]
     Active Substance: TADALAFIL
  6. LASIX [Concomitant]
     Active Substance: FUROSEMIDE
  7. LOSARTAN [Concomitant]
     Active Substance: LOSARTAN
  8. TRAZODONE [Concomitant]
     Active Substance: TRAZODONE HYDROCHLORIDE
  9. MINOXIDIL [Concomitant]
     Active Substance: MINOXIDIL
  10. MOBIC [Concomitant]
     Active Substance: MELOXICAM
  11. METFORMIN [Concomitant]
     Active Substance: METFORMIN HYDROCHLORIDE

REACTIONS (2)
  - Off label use [Unknown]
  - No adverse event [Unknown]
